FAERS Safety Report 22589138 (Version 1)
Quarter: 2023Q2

REPORT INFORMATION
  Report Type: Spontaneous
  Country: US (occurrence: None)
  Receive Date: 20230609
  Receipt Date: 20230609
  Transmission Date: 20230721
  Serious: No
  Sender: FDA-Public Use
  Company Number: None

PATIENT
  Sex: Male

DRUGS (17)
  1. BEXAROTENE [Suspect]
     Active Substance: BEXAROTENE
     Indication: Cutaneous T-cell lymphoma stage IV
     Dosage: FREQUENCY : DAILY;?
     Route: 048
  2. CLOPODOGREL [Concomitant]
  3. WARFARIN [Concomitant]
  4. METOPROLOL [Concomitant]
  5. AMLODIPINE [Concomitant]
  6. LOSARTAN [Concomitant]
     Active Substance: LOSARTAN
  7. ATORVASTATIN [Concomitant]
  8. VITAMIN B [Concomitant]
     Active Substance: VITAMIN B
  9. FOLIC ACID [Concomitant]
     Active Substance: FOLIC ACID
  10. SODIUM [Concomitant]
  11. GABAPENTIN [Concomitant]
  12. PANTOPRAZOLE [Concomitant]
     Active Substance: PANTOPRAZOLE
  13. PROCHLORPERAZINE [Concomitant]
  14. VITAMIN D3 [Concomitant]
     Active Substance: CHOLECALCIFEROL
  15. MAGNESIUM [Concomitant]
  16. CLOBETASOL [Concomitant]
  17. MUPIRIOCIN [Concomitant]

REACTIONS (1)
  - Sezary cells increased [None]
